FAERS Safety Report 4434536-4 (Version None)
Quarter: 2004Q3

REPORT INFORMATION
  Report Type: 
  Country: None (occurrence: None)
  Receive Date: 20040721
  Receipt Date: 20040414
  Transmission Date: 20050211
  Serious: No
  Sender: FDA-Public Use
  Company Number: 30019345-C606145-1

PATIENT
  Age: 18 Year
  Sex: Male
  Weight: 94.8 kg

DRUGS (13)
  1. EXTRANEAL [Suspect]
     Indication: PERITONEAL DIALYSIS
     Dosage: 7.5% ICODEXTRIN 2L QD; IP
     Route: 033
     Dates: start: 20040318, end: 20040413
  2. DIANEAL [Concomitant]
  3. DIANEAL [Concomitant]
  4. RETIN-A [Concomitant]
  5. CELEXA [Concomitant]
  6. EPOGEN [Concomitant]
  7. ZOCOR [Concomitant]
  8. BACTROBAN [Concomitant]
  9. ROCALTROL [Concomitant]
  10. FES04 [Concomitant]
  11. NEPHROVITE [Concomitant]
  12. MIRALAX [Concomitant]
  13. PHOSLO GELCAPS [Concomitant]

REACTIONS (2)
  - DERMATITIS BULLOUS [None]
  - RASH PRURITIC [None]
